FAERS Safety Report 5108851-5 (Version None)
Quarter: 2006Q3

REPORT INFORMATION
  Report Type: 
  Country: None (occurrence: None)
  Receive Date: 20060918
  Receipt Date: 20060904
  Transmission Date: 20061208
  Serious: Yes (Hospitalization)
  Sender: FDA-Public Use
  Company Number: 2006094799

PATIENT
  Age: 74 Year
  Sex: Male
  Weight: 77 kg

DRUGS (11)
  1. SUTENT [Suspect]
     Indication: RENAL CELL CARCINOMA STAGE UNSPECIFIED
     Dosage: SEE IMAGE, ORAL
     Route: 048
     Dates: start: 20060808, end: 20060817
  2. SUTENT [Suspect]
     Indication: RENAL CELL CARCINOMA STAGE UNSPECIFIED
     Dosage: SEE IMAGE, ORAL
     Route: 048
     Dates: start: 20060706
  3. METOPROLOL (METOPROLOL) [Concomitant]
  4. ISOSORBIDE MONONITRATE [Concomitant]
  5. CALCIUM (CALCIUM) [Concomitant]
  6. ESOMEPRAZOLE (ESOMEPRAZOLE) [Concomitant]
  7. PRAVASTATIN [Concomitant]
  8. OXAZEPAM [Concomitant]
  9. NITROGLYCERIN [Concomitant]
  10. SALMETEROL (SALMETEROL) [Concomitant]
  11. ACETAMINOPHEN [Concomitant]

REACTIONS (11)
  - ABNORMAL BEHAVIOUR [None]
  - APATHY [None]
  - BRADYPHRENIA [None]
  - C-REACTIVE PROTEIN INCREASED [None]
  - CONFUSIONAL STATE [None]
  - CYSTITIS [None]
  - HEADACHE [None]
  - INCONTINENCE [None]
  - METASTASES TO MENINGES [None]
  - THROMBOCYTOPENIA [None]
  - VASCULAR DEMENTIA [None]
